FAERS Safety Report 15124346 (Version 1)
Quarter: 2018Q3

REPORT INFORMATION
  Report Type: Spontaneous
  Country: US (occurrence: US)
  Receive Date: 20180710
  Receipt Date: 20180710
  Transmission Date: 20181010
  Serious: No
  Sender: FDA-Public Use
  Company Number: US-GLENMARK PHARMACEUTICALS-2017GMK030191

PATIENT

DRUGS (7)
  1. HYDROCHLOROTHIAZIDE. [Concomitant]
     Active Substance: HYDROCHLOROTHIAZIDE
     Indication: BLOOD PRESSURE ABNORMAL
     Dosage: 25 MG, OD
     Route: 048
  2. MUPIROCIN. [Suspect]
     Active Substance: MUPIROCIN
     Indication: BLISTER
     Dosage: UNK
     Route: 050
  3. CARTIA XT [Concomitant]
     Active Substance: DILTIAZEM HYDROCHLORIDE
     Indication: BLOOD PRESSURE ABNORMAL
     Dosage: 240 MG, 1/2 TAB IN THE EVENING AND 1/2 IN THE MORNING
     Route: 048
  4. RAMIPRIL. [Concomitant]
     Active Substance: RAMIPRIL
     Indication: HYPERTENSION
     Dosage: UNK
     Route: 048
  5. TAMSULOSIN [Concomitant]
     Active Substance: TAMSULOSIN
     Indication: HYPERTENSION
     Dosage: 0.4 MG, OD
     Route: 048
  6. FINASTERIDE. [Concomitant]
     Active Substance: FINASTERIDE
     Indication: BLOOD PRESSURE ABNORMAL
     Dosage: 5 MG, OD
     Route: 048
  7. WARFARIN [Concomitant]
     Active Substance: WARFARIN
     Indication: HEART RATE IRREGULAR
     Dosage: 1 MG, OD
     Route: 048

REACTIONS (2)
  - Drug effective for unapproved indication [Unknown]
  - No adverse event [Unknown]
